FAERS Safety Report 12227214 (Version 2)
Quarter: 2016Q2

REPORT INFORMATION
  Report Type: Spontaneous
  Country: IE (occurrence: IE)
  Receive Date: 20160331
  Receipt Date: 20160406
  Transmission Date: 20160815
  Serious: Yes (Other)
  Sender: FDA-Public Use
  Company Number: IE-SA-2016SA061098

PATIENT
  Age: 63 Year
  Sex: Female

DRUGS (7)
  1. AMLODIPINE [Concomitant]
     Active Substance: AMLODIPINE BESYLATE
  2. BURINEX [Concomitant]
     Active Substance: BUMETANIDE
  3. NOVORAPID [Concomitant]
     Active Substance: INSULIN ASPART
  4. ALLOPURINOL. [Concomitant]
     Active Substance: ALLOPURINOL
     Dates: end: 201602
  5. APROVEL [Suspect]
     Active Substance: IRBESARTAN
     Route: 065
     Dates: start: 2014
  6. LEVEMIR [Concomitant]
     Active Substance: INSULIN DETEMIR
  7. SIMVASTATIN. [Concomitant]
     Active Substance: SIMVASTATIN

REACTIONS (8)
  - Rash [Not Recovered/Not Resolved]
  - Hypersensitivity vasculitis [Not Recovered/Not Resolved]
  - Skin discolouration [Not Recovered/Not Resolved]
  - Cough [Not Recovered/Not Resolved]
  - Urticaria [Not Recovered/Not Resolved]
  - Arthropod sting [Not Recovered/Not Resolved]
  - Limb discomfort [Not Recovered/Not Resolved]
  - Dyspnoea [Not Recovered/Not Resolved]

NARRATIVE: CASE EVENT DATE: 201512
